FAERS Safety Report 13891610 (Version 1)
Quarter: 2017Q3

REPORT INFORMATION
  Report Type: Report from Study
  Country: BR (occurrence: BR)
  Receive Date: 20170822
  Receipt Date: 20170822
  Transmission Date: 20171127
  Serious: Yes (Death, Hospitalization, Other)
  Sender: FDA-Public Use
  Company Number: PHHY2015BR060410

PATIENT
  Age: 20 Year
  Sex: Female
  Weight: 65 kg

DRUGS (13)
  1. DECADRON [Suspect]
     Active Substance: DEXAMETHASONE
     Indication: PRODUCT USED FOR UNKNOWN INDICATION
     Dosage: 2 DF, EVERY 8 HOURS FOR 5 DAYS (4 MG)
     Route: 048
  2. DECADRON [Suspect]
     Active Substance: DEXAMETHASONE
     Dosage: 1 TABLET, Q12H FOR ANOTHER  DAYS
     Route: 065
  3. DECADRON [Suspect]
     Active Substance: DEXAMETHASONE
     Dosage: HALF TABLET EVERY 12 HOURS FOR ANOTHER 5 DAYS
     Route: 065
  4. DECADRON [Suspect]
     Active Substance: DEXAMETHASONE
     Dosage: 2 DF, QD
     Route: 065
  5. GILENYA [Suspect]
     Active Substance: FINGOLIMOD HYDROCHLORIDE
     Dosage: 0.5 MG, QD
     Route: 048
     Dates: end: 20161220
  6. DECADRON [Suspect]
     Active Substance: DEXAMETHASONE
     Dosage: 2 DF, TID
     Route: 065
  7. SLOW K [Concomitant]
     Active Substance: POTASSIUM CHLORIDE
     Indication: ELECTROLYTE SUBSTITUTION THERAPY
     Dosage: 1 DF, QD
     Route: 048
     Dates: start: 20151007
  8. GILENYA [Suspect]
     Active Substance: FINGOLIMOD HYDROCHLORIDE
     Indication: MULTIPLE SCLEROSIS
     Dosage: 0.5 MG, QD
     Route: 048
     Dates: start: 20140305
  9. TECFIDERA [Suspect]
     Active Substance: DIMETHYL FUMARATE
     Indication: PRODUCT USED FOR UNKNOWN INDICATION
     Dosage: UNK
     Route: 065
     Dates: start: 20161226
  10. Q10 [Concomitant]
     Indication: PRODUCT USED FOR UNKNOWN INDICATION
     Dosage: 1 DF, QD
     Route: 065
  11. OMEGA 3 [Concomitant]
     Active Substance: OMEGA-3 FATTY ACIDS
     Indication: PRODUCT USED FOR UNKNOWN INDICATION
     Dosage: 2 DF, QD
     Route: 065
  12. OMEPRAZOLE. [Concomitant]
     Active Substance: OMEPRAZOLE
     Indication: GASTRITIS PROPHYLAXIS
     Dosage: 1 DF, QD
     Route: 065
     Dates: start: 20151007
  13. GILENYA [Suspect]
     Active Substance: FINGOLIMOD HYDROCHLORIDE
     Dosage: 0.5 MG, QOD
     Route: 048
     Dates: start: 201601, end: 20160315

REACTIONS (20)
  - Multiple organ dysfunction syndrome [Fatal]
  - Nervousness [Unknown]
  - Pneumonia [Unknown]
  - Generalised oedema [Recovered/Resolved]
  - Cardio-respiratory arrest [Unknown]
  - Depression [Not Recovered/Not Resolved]
  - Vision blurred [Unknown]
  - Abdominal distension [Recovering/Resolving]
  - Dysphagia [Unknown]
  - Hemiplegia [Not Recovered/Not Resolved]
  - Drug ineffective [Unknown]
  - Hypoaesthesia [Recovering/Resolving]
  - Weight increased [Recovering/Resolving]
  - Muscular weakness [Recovering/Resolving]
  - Dyspnoea [Recovered/Resolved]
  - Multiple sclerosis relapse [Recovering/Resolving]
  - Hypoaesthesia oral [Recovering/Resolving]
  - Movement disorder [Recovering/Resolving]
  - Paraesthesia [Recovered/Resolved]
  - Fall [Unknown]

NARRATIVE: CASE EVENT DATE: 20150407
